FAERS Safety Report 18791501 (Version 2)
Quarter: 2021Q1

REPORT INFORMATION
  Report Type: Spontaneous
  Country: FR (occurrence: FR)
  Receive Date: 20210126
  Receipt Date: 20210311
  Transmission Date: 20210419
  Serious: Yes (Hospitalization, Other)
  Sender: FDA-Public Use
  Company Number: FR-ALXN-A202100756

PATIENT
  Age: 45 Year
  Sex: Male

DRUGS (2)
  1. SOLIRIS [Suspect]
     Active Substance: ECULIZUMAB
     Indication: PAROXYSMAL NOCTURNAL HAEMOGLOBINURIA
     Dosage: 1200 MG, Q12D
     Route: 042
     Dates: start: 2008
  2. SOLIRIS [Suspect]
     Active Substance: ECULIZUMAB
     Dosage: UNK
     Route: 065

REACTIONS (6)
  - Systemic inflammatory response syndrome [Unknown]
  - Anaemia macrocytic [Unknown]
  - COVID-19 [Recovering/Resolving]
  - Haemolysis [Recovered/Resolved]
  - SARS-CoV-2 test positive [Recovered/Resolved]
  - Acute respiratory distress syndrome [Recovered/Resolved]
